FAERS Safety Report 8204592-6 (Version None)
Quarter: 2012Q1

REPORT INFORMATION
  Report Type: 
  Country: None (occurrence: None)
  Receive Date: 20120313
  Receipt Date: 20120311
  Transmission Date: 20120608
  Serious: Yes (Hospitalization, Other)
  Sender: FDA-Public Use
  Company Number: US-PFIZER INC-2012063729

PATIENT
  Sex: Male
  Weight: 72.562 kg

DRUGS (2)
  1. IBUPROFEN (ADVIL) [Suspect]
     Dosage: 1400 MG FOUR TABLETS 3X/DAY
     Route: 048
     Dates: start: 20120301, end: 20120310
  2. IBUPROFEN (ADVIL) [Suspect]
     Indication: TOOTHACHE
     Dosage: 400 MG, 8X/DAY
     Route: 048
     Dates: start: 20120306

REACTIONS (5)
  - OVERDOSE [None]
  - AORTIC ANEURYSM [None]
  - INSOMNIA [None]
  - ABDOMINAL PAIN UPPER [None]
  - GASTRIC HAEMORRHAGE [None]
